FAERS Safety Report 12887771 (Version 1)
Quarter: 2016Q4

REPORT INFORMATION
  Report Type: Spontaneous
  Country: US (occurrence: US)
  Receive Date: 20161027
  Receipt Date: 20161027
  Transmission Date: 20170207
  Serious: Yes (Death, Hospitalization, Other)
  Sender: FDA-Public Use
  Company Number: US-STRIDES ARCOLAB LIMITED-2016SP013092

PATIENT

DRUGS (6)
  1. CORTICOSTEROIDS [Suspect]
     Active Substance: CORTICOSTEROID NOS
     Indication: IMMUNOSUPPRESSION
     Dosage: UNK
  2. ANTITHYMOCYTE IMMUNOGLOBULIN [Suspect]
     Active Substance: THYMOCYTE IMMUNE GLOBULIN NOS
     Indication: IMMUNOSUPPRESSION
     Dosage: 3 MG/KG, INDUCTION
  3. ANTITHYMOCYTE IMMUNOGLOBULIN [Suspect]
     Active Substance: THYMOCYTE IMMUNE GLOBULIN NOS
     Dosage: 3 MG/KG, UNK
  4. CORTICOSTEROIDS [Suspect]
     Active Substance: CORTICOSTEROID NOS
     Dosage: HIGH DOSE
  5. TACROLIMUS. [Suspect]
     Active Substance: TACROLIMUS
     Indication: IMMUNOSUPPRESSION
     Dosage: UNK
  6. MYCOPHENOLATE MOFETIL. [Suspect]
     Active Substance: MYCOPHENOLATE MOFETIL
     Indication: IMMUNOSUPPRESSION
     Dosage: UNK

REACTIONS (11)
  - Candida infection [Fatal]
  - Renal transplant failure [Unknown]
  - Tumour necrosis [Unknown]
  - Enterococcal bacteraemia [Fatal]
  - Hydronephrosis [Unknown]
  - Acute kidney injury [Unknown]
  - Pyrexia [Unknown]
  - Ureteric perforation [Unknown]
  - Ureteric obstruction [Unknown]
  - Post transplant lymphoproliferative disorder [Unknown]
  - Diffuse large B-cell lymphoma [Unknown]

NARRATIVE: CASE EVENT DATE: 201401
